FAERS Safety Report 6557764-0 (Version None)
Quarter: 2010Q1

REPORT INFORMATION
  Report Type: 
  Country: None (occurrence: None)
  Receive Date: 20100129
  Receipt Date: 20100115
  Transmission Date: 20100710
  Serious: No
  Sender: FDA-Public Use
  Company Number: US-B.I. PHARMACEUTICALS,INC./RIDGEFIELD-2010-BP-00667BP

PATIENT
  Sex: Female

DRUGS (13)
  1. SPIRIVA [Suspect]
     Indication: EMPHYSEMA
     Dosage: 18 MCG
     Route: 055
     Dates: start: 20090601, end: 20100115
  2. SPIRIVA [Suspect]
     Indication: ASTHMA
  3. ASMANEX TWISTHALER [Suspect]
     Indication: EMPHYSEMA
     Dates: start: 20090601
  4. ASMANEX TWISTHALER [Suspect]
     Indication: ASTHMA
  5. WARFARIN SODIUM [Concomitant]
     Indication: CARDIAC DISORDER
  6. HYZAAR [Concomitant]
     Indication: HYPERTENSION
  7. OMEPRAZOLE [Concomitant]
     Indication: GASTROOESOPHAGEAL REFLUX DISEASE
  8. LEVOTHYROXINE SODIUM [Concomitant]
     Indication: HYPOTHYROIDISM
  9. LANOXIN [Concomitant]
     Indication: CARDIAC DISORDER
  10. ZETIA [Concomitant]
     Indication: BLOOD CHOLESTEROL INCREASED
  11. WELCHOL [Concomitant]
     Indication: BLOOD CHOLESTEROL INCREASED
  12. MELOXICAM [Concomitant]
     Indication: ARTHRITIS
  13. INSULIN APIDRA [Concomitant]
     Indication: DIABETES MELLITUS

REACTIONS (1)
  - EPISTAXIS [None]
